FAERS Safety Report 17718327 (Version 2)
Quarter: 2020Q2

REPORT INFORMATION
  Report Type: Spontaneous
  Country: CA (occurrence: CA)
  Receive Date: 20200428
  Receipt Date: 20200609
  Transmission Date: 20200714
  Serious: Yes (Other)
  Sender: FDA-Public Use
  Company Number: CA-PFIZER INC-2019541149

PATIENT
  Age: 61 Year
  Sex: Male

DRUGS (9)
  1. INLYTA [Suspect]
     Active Substance: AXITINIB
     Indication: RENAL CANCER
     Dosage: UNK
     Dates: start: 20200210, end: 2020
  2. RANITIDINE. [Concomitant]
     Active Substance: RANITIDINE
     Dosage: UNK
  3. INLYTA [Suspect]
     Active Substance: AXITINIB
     Dosage: 7 MG, 2X/DAY
     Dates: start: 2020, end: 2020
  4. LORAZEPAM. [Concomitant]
     Active Substance: LORAZEPAM
     Dosage: UNK
  5. CITALOPRAM [Concomitant]
     Active Substance: CITALOPRAM HYDROBROMIDE
     Dosage: UNK
  6. INLYTA [Suspect]
     Active Substance: AXITINIB
     Dosage: 10 MG, UNK
     Dates: start: 2020, end: 2020
  7. ASA [Concomitant]
     Active Substance: ASPIRIN
     Dosage: UNK
  8. RAPAFLO [Concomitant]
     Active Substance: SILODOSIN
     Dosage: UNK
  9. ZOPICLONE [Concomitant]
     Active Substance: ZOPICLONE
     Dosage: UNK

REACTIONS (1)
  - Pathological fracture [Unknown]

NARRATIVE: CASE EVENT DATE: 2020
